FAERS Safety Report 9208636 (Version 1)
Quarter: 2013Q2

REPORT INFORMATION
  Report Type: Spontaneous
  Country: US (occurrence: US)
  Receive Date: 20130404
  Receipt Date: 20130404
  Transmission Date: 20140414
  Serious: Yes (Other)
  Sender: FDA-Public Use
  Company Number: US-PFIZER INC-2013102882

PATIENT
  Sex: Male
  Weight: 3.8 kg

DRUGS (2)
  1. AMPICILLIN SODIUM/SULBACTAM SODIUM [Suspect]
     Dosage: 500 MG, UNK
     Route: 064
  2. DIPHENHYDRAMINE [Suspect]
     Dosage: 50 MG, UNK
     Route: 064

REACTIONS (12)
  - Arrhythmia neonatal [Unknown]
  - Maternal exposure during pregnancy [Unknown]
  - Bradycardia [Unknown]
  - Premature baby [Unknown]
  - Umbilical cord around neck [None]
  - Neonatal respiratory arrest [None]
  - Apgar score low [None]
  - Metabolic acidosis [None]
  - Agitation neonatal [None]
  - Blood pressure abnormal [None]
  - Neonatal pneumonia [None]
  - Maternal drugs affecting foetus [None]
